FAERS Safety Report 5916763-X (Version None)
Quarter: 2008Q4

REPORT INFORMATION
  Report Type: 
  Country: None (occurrence: None)
  Receive Date: 20081013
  Receipt Date: 20081001
  Transmission Date: 20090506
  Serious: Yes (Other)
  Sender: FDA-Public Use
  Company Number: US-PFIZER INC-2008063783

PATIENT
  Sex: Female

DRUGS (3)
  1. CHANTIX [Suspect]
     Indication: SMOKING CESSATION THERAPY
     Route: 048
  2. PERCOCET [Concomitant]
  3. CYMBALTA [Concomitant]

REACTIONS (2)
  - CARPAL TUNNEL SYNDROME [None]
  - THROAT TIGHTNESS [None]
